FAERS Safety Report 14575975 (Version 2)
Quarter: 2018Q2

REPORT INFORMATION
  Report Type: Spontaneous
  Country: US (occurrence: US)
  Receive Date: 20180227
  Receipt Date: 20180605
  Transmission Date: 20180711
  Serious: No
  Sender: FDA-Public Use
  Company Number: PHEH2018US007080

PATIENT
  Age: 40 Year
  Sex: Female

DRUGS (1)
  1. OMNITROPE [Suspect]
     Active Substance: SOMATROPIN
     Indication: IN VITRO FERTILISATION
     Dosage: 5.8 OT, QD
     Route: 065
     Dates: start: 20180211

REACTIONS (3)
  - Liquid product physical issue [Unknown]
  - Poor quality drug administered [Unknown]
  - Injection site reaction [Unknown]

NARRATIVE: CASE EVENT DATE: 20180211
